FAERS Safety Report 6085942-6 (Version None)
Quarter: 2009Q1

REPORT INFORMATION
  Report Type: 
  Country: None (occurrence: None)
  Receive Date: 20090220
  Receipt Date: 20090212
  Transmission Date: 20090719
  Serious: Yes (Life-Threatening, Other)
  Sender: FDA-Public Use
  Company Number: FR-WYE-H08242609

PATIENT
  Sex: Female

DRUGS (3)
  1. INIPOMP [Suspect]
     Indication: GASTROOESOPHAGEAL REFLUX DISEASE
     Route: 048
     Dates: start: 20090107, end: 20090116
  2. SEROPRAM [Concomitant]
     Indication: DEPRESSION
     Dosage: UNKNOWN
     Route: 048
     Dates: start: 20090113, end: 20090113
  3. LEVOTHYROXINE SODIUM [Concomitant]
     Indication: HYPOTHYROIDISM
     Dosage: UNKNOWN
     Route: 048

REACTIONS (2)
  - COMA [None]
  - HYPONATRAEMIA [None]
